FAERS Safety Report 22585848 (Version 1)
Quarter: 2023Q2

REPORT INFORMATION
  Report Type: Report from Study
  Country: US (occurrence: US)
  Receive Date: 20230610
  Receipt Date: 20230610
  Transmission Date: 20230722
  Serious: Yes (Other)
  Sender: FDA-Public Use
  Company Number: US-TAKEDA-2022TUS084178

PATIENT
  Sex: Male

DRUGS (2)
  1. IXAZOMIB [Suspect]
     Active Substance: IXAZOMIB
     Indication: Neoplasm malignant
     Dosage: 3 MILLIGRAM
     Route: 048
     Dates: end: 20230531
  2. IXAZOMIB [Suspect]
     Active Substance: IXAZOMIB
     Indication: Plasma cell myeloma

REACTIONS (4)
  - Plasma cell myeloma [Unknown]
  - Treatment noncompliance [Unknown]
  - Headache [Unknown]
  - Diarrhoea [Unknown]
